FAERS Safety Report 7918508 (Version 6)
Quarter: 2013Q1

REPORT INFORMATION
  Report Type: Spontaneous
  Country: US (occurrence: US)
  Receive Date: 20110428
  Receipt Date: 20130107
  Transmission Date: 20140127
  Serious: Yes (Hospitalization, Other)
  Sender: FDA-Public Use
  Company Number: US-ASTRAZENECA-2010SE59784

PATIENT
  Age: 65 Year
  Sex: Female

DRUGS (5)
  1. ZOMIG [Suspect]
     Route: 048
     Dates: start: 2010
  2. SYMBICORT PMDI [Suspect]
     Dosage: UNKNOWN FREQUENCY
     Route: 055
  3. METHERGINE [Suspect]
     Indication: MIGRAINE
     Route: 065
     Dates: start: 200809, end: 2010
  4. ANOTHER MEDICATION [Suspect]
     Route: 065
  5. NEPHROGEN [Concomitant]

REACTIONS (21)
  - Pneumonia [Unknown]
  - Goitre [Unknown]
  - Macular degeneration [Unknown]
  - Confusional state [Unknown]
  - Road traffic accident [Unknown]
  - Hallucination [Unknown]
  - Migraine [Unknown]
  - Balance disorder [Unknown]
  - Visual impairment [Unknown]
  - Malaise [Unknown]
  - Memory impairment [Unknown]
  - Abdominal discomfort [Unknown]
  - Vomiting [Unknown]
  - Nervousness [Unknown]
  - Infection [Unknown]
  - Immune system disorder [Unknown]
  - Insomnia [Unknown]
  - Pleuritic pain [Unknown]
  - Anxiety disorder [Unknown]
  - Headache [Unknown]
  - Drug dose omission [Unknown]
